FAERS Safety Report 7510410-1 (Version None)
Quarter: 2011Q2

REPORT INFORMATION
  Report Type: 
  Country: None (occurrence: None)
  Receive Date: 20110527
  Receipt Date: 20110520
  Transmission Date: 20111010
  Serious: Yes (Hospitalization, Other)
  Sender: FDA-Public Use
  Company Number: US-MERCK-1003USA04016

PATIENT
  Age: 56 Year
  Sex: Female
  Weight: 81 kg

DRUGS (6)
  1. FOSAMAX [Suspect]
     Route: 048
     Dates: start: 19980101
  2. FOSAMAX [Suspect]
     Route: 048
     Dates: start: 20080101
  3. VITAMINS (UNSPECIFIED) [Concomitant]
     Route: 065
     Dates: start: 19930101
  4. FOSAMAX [Suspect]
     Route: 048
     Dates: start: 20080812, end: 20090124
  5. FOSAMAX [Suspect]
     Indication: BONE LOSS
     Route: 048
     Dates: end: 20080501
  6. ALENDRONATE SODIUM [Concomitant]
     Route: 048
     Dates: start: 20060101

REACTIONS (57)
  - ARTHROPATHY [None]
  - BENIGN NEOPLASM [None]
  - HYPOAESTHESIA [None]
  - BURSITIS [None]
  - ACROCHORDON [None]
  - JOINT SPRAIN [None]
  - SCOLIOSIS [None]
  - FIBULA FRACTURE [None]
  - IRRITABLE BOWEL SYNDROME [None]
  - WRONG DRUG ADMINISTERED [None]
  - OSTEOARTHRITIS [None]
  - IMPAIRED HEALING [None]
  - ADVERSE EVENT [None]
  - FRACTURE NONUNION [None]
  - ESSENTIAL HYPERTENSION [None]
  - BACK PAIN [None]
  - LIPOMA [None]
  - TENDONITIS [None]
  - SLEEP DISORDER [None]
  - FEMUR FRACTURE [None]
  - ANKLE FRACTURE [None]
  - PERIORBITAL HAEMATOMA [None]
  - LIPOMA OF BREAST [None]
  - OSTEOPOROSIS [None]
  - BONE DENSITY DECREASED [None]
  - APHTHOUS STOMATITIS [None]
  - DEVICE FAILURE [None]
  - OVERDOSE [None]
  - NIGHT SWEATS [None]
  - OEDEMA PERIPHERAL [None]
  - PRESYNCOPE [None]
  - LOW TURNOVER OSTEOPATHY [None]
  - MEDIAL TIBIAL STRESS SYNDROME [None]
  - HYPERTENSION [None]
  - HYPERLIPIDAEMIA [None]
  - HIATUS HERNIA [None]
  - HEADACHE [None]
  - PYREXIA [None]
  - INCISIONAL HERNIA [None]
  - HAEMATOCHEZIA [None]
  - CONTUSION [None]
  - INAPPROPRIATE SCHEDULE OF DRUG ADMINISTRATION [None]
  - INCISION SITE PAIN [None]
  - BURNING SENSATION [None]
  - FALL [None]
  - LIMB DISCOMFORT [None]
  - WEIGHT INCREASED [None]
  - SYNCOPE [None]
  - ARTHRALGIA [None]
  - INCISION SITE CELLULITIS [None]
  - DEEP VEIN THROMBOSIS [None]
  - INFECTION [None]
  - JOINT SWELLING [None]
  - SLUGGISHNESS [None]
  - MALAISE [None]
  - OSTEOPENIA [None]
  - CARPAL TUNNEL SYNDROME [None]
